FAERS Safety Report 4969086-X (Version None)
Quarter: 2006Q2

REPORT INFORMATION
  Report Type: 
  Country: None (occurrence: None)
  Receive Date: 20060411
  Receipt Date: 20060331
  Transmission Date: 20061013
  Serious: Yes (Other)
  Sender: FDA-Public Use
  Company Number: US-JNJFOC-20060400551

PATIENT
  Sex: Female
  Weight: 64.41 kg

DRUGS (3)
  1. REMICADE [Suspect]
     Indication: RHEUMATOID ARTHRITIS
     Dosage: DOSE 2-5 VIALS
     Route: 042
  2. PREDNISONE [Concomitant]
     Dosage: DURATION 6 MONTHS PLUS
  3. METHOTREXATE [Concomitant]
     Dosage: DURATION 6 MONTHS PLUS

REACTIONS (1)
  - NEOPLASM MALIGNANT [None]
